FAERS Safety Report 5920377-5 (Version None)
Quarter: 2008Q4

REPORT INFORMATION
  Report Type: 
  Country: None (occurrence: None)
  Receive Date: 20081016
  Receipt Date: 20081009
  Transmission Date: 20090506
  Serious: Yes (Hospitalization, Other)
  Sender: FDA-Public Use
  Company Number: PHBS2006BR12084

PATIENT
  Sex: Male
  Weight: 82 kg

DRUGS (15)
  1. FORASEQ [Suspect]
     Indication: ASTHMA
     Dosage: 12/200 MCG, EVERY 12 HOURS
     Dates: end: 20080330
  2. FORASEQ [Suspect]
     Dosage: 12/200 MCG, 1/DAY
  3. FORASEQ [Suspect]
     Dosage: 12/400MCG
     Dates: start: 20071231, end: 20080330
  4. FORASEQ [Suspect]
     Dosage: UNK, QD
  5. FORASEQ [Suspect]
     Dosage: UNK, BID
  6. FORASEQ [Suspect]
     Dosage: 12/200 MCG, MORE THAN 2 TIMES/DAY
  7. ALDACTONE [Concomitant]
     Indication: CARDIOMEGALY
     Dosage: 1/2 DF DAILY
     Route: 048
  8. ALDACTONE [Concomitant]
     Indication: CARDIAC FAILURE
  9. ALDACTONE [Concomitant]
     Indication: CARDIAC DISORDER
  10. AMIODARONE [Concomitant]
     Indication: ARRHYTHMIA
     Dosage: 200 MG, QD
     Route: 048
     Dates: start: 20060601
  11. ENALAPRIL MALEATE [Concomitant]
     Indication: HYPERTENSION
     Dosage: 12.5 ENAL - 20 MG MALE MG/BID
     Route: 048
     Dates: start: 20030101
  12. DIAZEPAM [Concomitant]
     Indication: CEREBRAL DISORDER
     Dosage: 10 MG, UNK
     Route: 048
     Dates: start: 19960101
  13. DIAZEPAM [Concomitant]
     Indication: NERVOUS SYSTEM DISORDER
     Dosage: 10 MG, UNK
     Route: 048
  14. HYDROCHLOROTHIAZIDE [Concomitant]
     Indication: HYPERTENSION
     Dosage: 25 MG, 1 TABLET/DAY
     Route: 048
  15. CAPTOPRIL [Concomitant]
     Indication: HYPERTENSION
     Dosage: UNK, UNK
     Route: 048
     Dates: end: 20060601

REACTIONS (20)
  - ARRHYTHMIA [None]
  - ASTHENIA [None]
  - ASTHMA [None]
  - BLOOD PRESSURE INCREASED [None]
  - CONFUSIONAL STATE [None]
  - COUGH [None]
  - DEVICE MALFUNCTION [None]
  - DRUG INEFFECTIVE [None]
  - DYSPHONIA [None]
  - DYSPNOEA [None]
  - FATIGUE [None]
  - FEELING ABNORMAL [None]
  - HEART RATE INCREASED [None]
  - HYPOAESTHESIA ORAL [None]
  - INCORRECT DOSE ADMINISTERED [None]
  - NASOPHARYNGITIS [None]
  - OEDEMA PERIPHERAL [None]
  - PALPITATIONS [None]
  - PULMONARY FUNCTION TEST DECREASED [None]
  - WEIGHT DECREASED [None]
